FAERS Safety Report 5087999-8 (Version None)
Quarter: 2006Q3

REPORT INFORMATION
  Report Type: 
  Country: None (occurrence: None)
  Receive Date: 20060821
  Receipt Date: 20060804
  Transmission Date: 20061208
  Serious: Yes (Hospitalization, Other)
  Sender: FDA-Public Use
  Company Number: DSA_61050_2006

PATIENT
  Age: 3 Year
  Sex: Female
  Weight: 11.3399 kg

DRUGS (2)
  1. DIASTAT [Suspect]
     Indication: CONVULSION
     Dosage: 5 MG PRN RC
     Dates: start: 20060802
  2. TRILEPTAL [Concomitant]

REACTIONS (4)
  - BALANCE DISORDER [None]
  - CONVULSION [None]
  - DRUG INEFFECTIVE [None]
  - LETHARGY [None]
